FAERS Safety Report 11419433 (Version 1)
Quarter: 2015Q3

REPORT INFORMATION
  Report Type: Spontaneous
  Country: IT (occurrence: IT)
  Receive Date: 20150826
  Receipt Date: 20150826
  Transmission Date: 20151125
  Serious: Yes (Death)
  Sender: FDA-Public Use
  Company Number: IT-SUN PHARMACEUTICAL INDUSTRIES LTD-2015R1-102155

PATIENT

DRUGS (4)
  1. PREDNISONE. [Suspect]
     Active Substance: PREDNISONE
     Indication: CHEMOTHERAPY
     Dosage: 40 MG/M2, DAILY ON DAY 1 TO 5, EVERY 3 WEEKS FOR 6-8 CYCLES
     Route: 048
  2. VINCRISTINE [Suspect]
     Active Substance: VINCRISTINE
     Indication: CHEMOTHERAPY
     Dosage: 2 MG ON DAY1, EVERY 3 WEEKS FOR 6-8 CYCLES
     Route: 065
  3. CYCLOPHOSPHAMIDE. [Suspect]
     Active Substance: CYCLOPHOSPHAMIDE
     Indication: CHEMOTHERAPY
     Dosage: 750 MG/M2 ON DAY 1, EVERY 3 WEEKS FOR 6-8 CYCLES
     Route: 065
  4. RITUXIMAB [Suspect]
     Active Substance: RITUXIMAB
     Indication: CHEMOTHERAPY
     Dosage: 375MG/M2 ON DAY 8 OF THE FIRST CYCLE AND THEN ON DAY 1 OF EACH CYCLE, EVERY 3 WEEKS FOR 6-8 CYCLES
     Route: 065

REACTIONS (1)
  - Ischaemic cardiomyopathy [Fatal]
